FAERS Safety Report 20004492 (Version 1)
Quarter: 2021Q4

REPORT INFORMATION
  Report Type: Spontaneous
  Country: SE (occurrence: SE)
  Receive Date: 20211027
  Receipt Date: 20211027
  Transmission Date: 20220303
  Serious: Yes (Hospitalization)
  Sender: FDA-Public Use
  Company Number: None

PATIENT
  Age: 87 Year
  Sex: Female

DRUGS (9)
  1. RIVASTIGMINE [Suspect]
     Active Substance: RIVASTIGMINE
     Dosage: 6MILLIGRAM
     Dates: end: 202106
  2. DENTAN [Concomitant]
     Active Substance: SODIUM FLUORIDE
     Dosage: MINT:UNIT DOSE:2ML
     Dates: start: 20210108
  3. BUPRENORPHINE [Concomitant]
     Active Substance: BUPRENORPHINE
     Dosage: 1 PATCH / WEEK:DEPOT PATCHES
     Dates: start: 20210108
  4. NITROLINGUAL [Concomitant]
     Active Substance: NITROGLYCERIN
     Dosage: 1-2 DOSES VB
     Dates: start: 20191018
  5. ACETAMINOPHEN [Concomitant]
     Active Substance: ACETAMINOPHEN
     Dosage: 1-2 VB, MAXIMUM 6 / DAY
     Dates: start: 20171102
  6. BENSERAZIDE HYDROCHLORIDE\LEVODOPA [Concomitant]
     Active Substance: BENSERAZIDE HYDROCHLORIDE\LEVODOPA
     Dosage: FORMSTRENGTH:100 MG / 25 MG:UNIT DOSE:1DOSAGEFORM
     Dates: start: 20171102
  7. LACTULOSE [Concomitant]
     Active Substance: LACTULOSE
     Dosage: 20ML
     Dates: start: 20200117
  8. SODIUM PICOSULFATE [Concomitant]
     Active Substance: SODIUM PICOSULFATE
     Dosage: 10-30 DROPS VB:FORMSTRENGTH: 7,5 MG/ML
     Dates: start: 20210109
  9. ELIQUIS [Concomitant]
     Active Substance: APIXABAN
     Dosage: 5MILLIGRAM
     Dates: start: 20181206

REACTIONS (1)
  - Depressed level of consciousness [Recovering/Resolving]

NARRATIVE: CASE EVENT DATE: 20210601
